FAERS Safety Report 8990917 (Version 1)
Quarter: 2012Q4

REPORT INFORMATION
  Report Type: Spontaneous
  Country: TR (occurrence: None)
  Receive Date: 20121221
  Receipt Date: 20121221
  Transmission Date: 20130627
  Serious: Yes (Hospitalization, Other)
  Sender: FDA-Public Use
  Company Number: 2012P1066959

PATIENT
  Age: 24 Year
  Sex: Male

DRUGS (1)
  1. CEFTRIAXONE [Suspect]
     Indication: LOWER RESPIRATORY TRACT INFECTION
     Route: 030

REACTIONS (9)
  - Myocardial infarction [None]
  - Visual impairment [None]
  - Erythema [None]
  - Erythema [None]
  - Electrocardiogram ST segment elevation [None]
  - Acute coronary syndrome [None]
  - Drug hypersensitivity [None]
  - Coronary artery dilatation [None]
  - Cardiovascular disorder [None]
